FAERS Safety Report 4764183-6 (Version None)
Quarter: 2005Q3

REPORT INFORMATION
  Report Type: 
  Country: None (occurrence: None)
  Receive Date: 20050902
  Receipt Date: 20050309
  Transmission Date: 20060218
  Serious: Yes (Other)
  Sender: FDA-Public Use
  Company Number: TNZUS200500026

PATIENT

DRUGS (1)
  1. INNOHEP [Suspect]
     Indication: DEEP VEIN THROMBOSIS

REACTIONS (2)
  - INJECTION SITE VESICLES [None]
  - REACTION TO PRESERVATIVES [None]
